FAERS Safety Report 14538540 (Version 1)
Quarter: 2018Q1

REPORT INFORMATION
  Report Type: Spontaneous
  Country: PT (occurrence: PT)
  Receive Date: 20180216
  Receipt Date: 20180216
  Transmission Date: 20180509
  Serious: Yes (Other)
  Sender: FDA-Public Use
  Company Number: PT-009507513-1802PRT005197

PATIENT
  Age: 56 Year
  Sex: Female

DRUGS (3)
  1. OLCADIL [Suspect]
     Active Substance: CLOXAZOLAM
     Indication: PRODUCT USED FOR UNKNOWN INDICATION
     Dosage: UNK
     Route: 065
  2. ZOMARIST [Suspect]
     Active Substance: VILDAGLIPTIN
     Indication: DIABETES MELLITUS
     Dosage: UNK
     Route: 065
  3. SIMVASTATIN. [Suspect]
     Active Substance: SIMVASTATIN
     Dosage: UNK
     Route: 065

REACTIONS (11)
  - Hepatotoxicity [Unknown]
  - Arthralgia [Unknown]
  - Metastatic malignant melanoma [Unknown]
  - Diarrhoea [Unknown]
  - Rash [Unknown]
  - Rash pruritic [Unknown]
  - Myalgia [Unknown]
  - Traumatic lung injury [Unknown]
  - Breast mass [Unknown]
  - Musculoskeletal pain [Unknown]
  - Metastasis [Unknown]
